FAERS Safety Report 4511388-5 (Version None)
Quarter: 2004Q4

REPORT INFORMATION
  Report Type: 
  Country: None (occurrence: None)
  Receive Date: 20041123
  Receipt Date: 20041123
  Transmission Date: 20050328
  Serious: Yes (Hospitalization)
  Sender: FDA-Public Use
  Company Number: None

PATIENT
  Age: 66 Year
  Sex: Male

DRUGS (11)
  1. MILRINONE [Suspect]
     Indication: CARDIAC FAILURE
  2. ASPIRIN [Concomitant]
  3. TAMSULOSIN [Concomitant]
  4. ALDACTONE [Concomitant]
  5. LORATADINE [Concomitant]
  6. HYDROXYZINE [Concomitant]
  7. TORSEMIDE [Concomitant]
  8. WARFARIN SODIUM [Concomitant]
  9. AMIODARONE HCL [Concomitant]
  10. FUROSEMIDE [Concomitant]
  11. DOBUTAMINE [Concomitant]

REACTIONS (8)
  - CARDIAC FAILURE CONGESTIVE [None]
  - CARDIAC OUTPUT DECREASED [None]
  - HEART TRANSPLANT [None]
  - HYPOTENSION [None]
  - POLYURIA [None]
  - PYREXIA [None]
  - RENAL IMPAIRMENT [None]
  - SEPSIS [None]
